FAERS Safety Report 16086132 (Version 2)
Quarter: 2019Q1

REPORT INFORMATION
  Report Type: Spontaneous
  Country: US (occurrence: US)
  Receive Date: 20190318
  Receipt Date: 20190326
  Transmission Date: 20190418
  Serious: No
  Sender: FDA-Public Use
  Company Number: US-JNJFOC-20190234756

PATIENT
  Age: 82 Year
  Sex: Female
  Weight: 63.5 kg

DRUGS (2)
  1. MENS ROGAINE [Suspect]
     Active Substance: MINOXIDIL
     Indication: ALOPECIA
     Dosage: ABOUT AN INCH HIGH ON THE DROPPER
     Route: 061
     Dates: start: 20180701
  2. MENS ROGAINE [Suspect]
     Active Substance: MINOXIDIL
     Indication: NAIL DISORDER
     Dosage: ABOUT AN INCH HIGH ON THE DROPPER
     Route: 061
     Dates: start: 20180701

REACTIONS (5)
  - Product use in unapproved indication [Unknown]
  - Therapeutic response unexpected [Unknown]
  - Hair texture abnormal [Unknown]
  - Product use issue [Unknown]
  - Intentional product misuse [Unknown]

NARRATIVE: CASE EVENT DATE: 20180701
